FAERS Safety Report 14686343 (Version 2)
Quarter: 2018Q2

REPORT INFORMATION
  Report Type: Spontaneous
  Country: FR (occurrence: FR)
  Receive Date: 20180327
  Receipt Date: 20180409
  Transmission Date: 20180711
  Serious: Yes (Other)
  Sender: FDA-Public Use
  Company Number: FR-TEVA-2018-FR-872487

PATIENT
  Age: 17 Year
  Sex: Female
  Weight: 56 kg

DRUGS (3)
  1. ANTADYS 100 MG [Suspect]
     Active Substance: FLURBIPROFEN
     Indication: DYSMENORRHOEA
     Route: 048
     Dates: start: 20171113, end: 20171113
  2. ANTADYS 100 MG [Suspect]
     Active Substance: FLURBIPROFEN
     Route: 048
     Dates: start: 20180306, end: 20180306
  3. DAILY GE [Concomitant]
     Active Substance: ETHINYL ESTRADIOL\LEVONORGESTREL
     Dates: start: 20171111, end: 20171113

REACTIONS (6)
  - Dyspnoea [Recovered/Resolved]
  - Blood pressure decreased [Recovered/Resolved]
  - Lip swelling [Recovered/Resolved]
  - Eyelid oedema [Recovered/Resolved]
  - Pharyngeal oedema [Recovered/Resolved]
  - Anaphylactic shock [Recovered/Resolved]

NARRATIVE: CASE EVENT DATE: 20180306
